FAERS Safety Report 16016451 (Version 2)
Quarter: 2019Q1

REPORT INFORMATION
  Report Type: Spontaneous
  Country: DK (occurrence: DK)
  Receive Date: 20190228
  Receipt Date: 20190305
  Transmission Date: 20190418
  Serious: Yes (Hospitalization)
  Sender: FDA-Public Use
  Company Number: DK-ROCHE-2273976

PATIENT
  Age: 94 Year
  Sex: Female

DRUGS (1)
  1. ACTILYSE [Suspect]
     Active Substance: ALTEPLASE
     Indication: CEREBROVASCULAR ACCIDENT
     Dosage: DOSE: 4 MG BOLUS AND 32 MG CONTINUOUS INFUSION, FORM: POWDER FOR SOLUTION FOR INJECTION OR INFUSION.
     Route: 042
     Dates: start: 20190126

REACTIONS (2)
  - Haemoglobin decreased [Recovering/Resolving]
  - Contusion [Unknown]

NARRATIVE: CASE EVENT DATE: 20190127
